FAERS Safety Report 11486601 (Version 13)
Quarter: 2016Q4

REPORT INFORMATION
  Report Type: Spontaneous
  Country: US (occurrence: US)
  Receive Date: 20150910
  Receipt Date: 20161228
  Transmission Date: 20170206
  Serious: Yes (Hospitalization)
  Sender: FDA-Public Use
  Company Number: US-PFIZER INC-2015285374

PATIENT
  Age: 48 Year
  Sex: Female
  Weight: 50 kg

DRUGS (19)
  1. CYCLOBENZAPRINE HCL [Concomitant]
     Active Substance: CYCLOBENZAPRINE HYDROCHLORIDE
     Dosage: 10 MG, 3X/DAY
     Route: 048
     Dates: start: 20150922
  2. PREMPRO [Concomitant]
     Active Substance: ESTROGENS, CONJUGATED\MEDROXYPROGESTERONE ACETATE
     Indication: MENOPAUSE
     Dosage: 1 DF (0.3-1.5 MG), DAILY
     Route: 048
  3. HYDROCODEINE [Concomitant]
     Active Substance: DIHYDROCODEINE PHOSPHATE
     Indication: BACK DISORDER
  4. PREMPRO [Concomitant]
     Active Substance: ESTROGENS, CONJUGATED\MEDROXYPROGESTERONE ACETATE
     Dosage: 0.625MG/5MG, 1X/DAY
     Route: 048
     Dates: start: 2013
  5. PROTONIX [Concomitant]
     Active Substance: PANTOPRAZOLE SODIUM
     Dosage: 20 MG, DAILY
     Route: 048
     Dates: start: 20151125
  6. VENLAFAXINE ER [Concomitant]
     Active Substance: VENLAFAXINE HYDROCHLORIDE
     Indication: MENOPAUSE
     Dosage: 37.5
     Dates: start: 2013
  7. NAPROXEN. [Concomitant]
     Active Substance: NAPROXEN
     Dosage: 500 MG, EVERY 12 HOURS AS NEEDED
     Route: 048
     Dates: start: 20150922
  8. ZESTRIL [Concomitant]
     Active Substance: LISINOPRIL
     Dosage: 10 MG, DAILY
     Route: 048
     Dates: start: 20151125
  9. NORCO [Concomitant]
     Active Substance: ACETAMINOPHEN\HYDROCODONE BITARTRATE
     Dosage: 1 DF (5-325 MG), EVERY 4 TO 6 HOURS AS NEEDED
     Route: 048
     Dates: start: 20150922
  10. MUPIROCIN. [Concomitant]
     Active Substance: MUPIROCIN
     Dosage: APPLY SPARINGLY TO AFFECTED AREA(S) TWICE DAILY AS NEEDED
     Route: 061
     Dates: start: 20151008
  11. PANTOPRAZOLE [Concomitant]
     Active Substance: PANTOPRAZOLE SODIUM
     Indication: GASTRIC DISORDER
     Dosage: 20 MG, 1X/DAY
     Dates: start: 2015
  12. HYDROCODEINE [Concomitant]
     Active Substance: DIHYDROCODEINE PHOSPHATE
     Indication: ARTHRITIS
     Dosage: 7.5, ONE EVERY 4-6 HOURS
  13. LYRICA [Suspect]
     Active Substance: PREGABALIN
     Indication: BACK PAIN
     Dosage: 300 MG, 2X/DAY
     Route: 048
     Dates: start: 20151125, end: 201603
  14. LEVOTHYROXINE SODIUM. [Concomitant]
     Active Substance: LEVOTHYROXINE SODIUM
     Indication: THYROID DISORDER
     Dosage: 75 UG, DAILY
     Route: 048
     Dates: start: 2007
  15. LIOTHYRONINE [Concomitant]
     Active Substance: LIOTHYRONINE
     Indication: THYROID DISORDER
     Dosage: 5 UG, 1X/DAY
     Dates: start: 2007
  16. LYRICA [Suspect]
     Active Substance: PREGABALIN
     Indication: FIBROMYALGIA
  17. EFFEXOR [Concomitant]
     Active Substance: VENLAFAXINE HYDROCHLORIDE
     Dosage: 37.5 MG, 1X/DAY
     Route: 048
  18. CYTOMEL [Concomitant]
     Active Substance: LIOTHYRONINE SODIUM
     Dosage: 5 UG, DAILY
     Route: 048
     Dates: start: 20151204
  19. VITAMIN D [Concomitant]
     Active Substance: CHOLECALCIFEROL
     Indication: SUPPLEMENTATION THERAPY
     Dosage: 1 CAPSULE EVERY TUESDAY
     Dates: start: 201602

REACTIONS (20)
  - Condition aggravated [Not Recovered/Not Resolved]
  - Impaired work ability [Unknown]
  - Chills [Not Recovered/Not Resolved]
  - Discomfort [Unknown]
  - Hypertension [Not Recovered/Not Resolved]
  - Chest pain [Unknown]
  - Mobility decreased [Unknown]
  - Burning sensation [Unknown]
  - Dizziness [Unknown]
  - Insomnia [Not Recovered/Not Resolved]
  - Withdrawal syndrome [Unknown]
  - Hot flush [Not Recovered/Not Resolved]
  - Gait disturbance [Unknown]
  - Enteritis infectious [Unknown]
  - Influenza [Unknown]
  - Vomiting [Unknown]
  - Abdominal discomfort [Unknown]
  - Pain [Not Recovered/Not Resolved]
  - Hyperhidrosis [Unknown]
  - Malaise [Unknown]

NARRATIVE: CASE EVENT DATE: 2016
